FAERS Safety Report 5223019-X (Version None)
Quarter: 2007Q1

REPORT INFORMATION
  Report Type: 
  Country: None (occurrence: None)
  Receive Date: 20070129
  Receipt Date: 20070119
  Transmission Date: 20070707
  Serious: No
  Sender: FDA-Public Use
  Company Number: GB-PFIZER INC-2006151579

PATIENT
  Age: 69 Year
  Sex: Male

DRUGS (12)
  1. CARDURA [Suspect]
  2. ADALAT [Concomitant]
  3. DESERIL [Concomitant]
  4. DICLOFENAC SODIUM [Concomitant]
  5. OLMETEC [Concomitant]
  6. INDERAL [Concomitant]
  7. NARAMIG [Concomitant]
  8. SIMVASTATIN [Concomitant]
  9. TEGRETOL [Concomitant]
  10. TOPAMAX [Concomitant]
  11. VIAGRA [Concomitant]
  12. LANSOPRAZOLE [Concomitant]

REACTIONS (1)
  - NO ADVERSE EFFECT [None]
